FAERS Safety Report 20950413 (Version 1)
Quarter: 2022Q2

REPORT INFORMATION
  Report Type: Spontaneous
  Country: US (occurrence: US)
  Receive Date: 20220613
  Receipt Date: 20220613
  Transmission Date: 20220721
  Serious: Yes (Other)
  Sender: FDA-Public Use
  Company Number: US-drreddys-LIT/USA/22/0151050

PATIENT
  Age: 75 Year
  Sex: Female

DRUGS (6)
  1. QUETIAPINE FUMARATE [Suspect]
     Active Substance: QUETIAPINE FUMARATE
     Indication: Dementia with Lewy bodies
  2. RIVASTIGMINE TARTRATE [Suspect]
     Active Substance: RIVASTIGMINE TARTRATE
     Indication: Dementia with Lewy bodies
  3. DULOXETINE [Suspect]
     Active Substance: DULOXETINE
     Indication: Dementia with Lewy bodies
  4. OXCARBAZEPINE [Suspect]
     Active Substance: OXCARBAZEPINE
     Indication: Dementia with Lewy bodies
  5. LEVODOPA [Suspect]
     Active Substance: LEVODOPA
     Indication: Dementia with Lewy bodies
  6. CARBIDOPA [Suspect]
     Active Substance: CARBIDOPA
     Indication: Dementia with Lewy bodies

REACTIONS (1)
  - Treatment failure [Unknown]
